FAERS Safety Report 24313298 (Version 1)
Quarter: 2024Q3

REPORT INFORMATION
  Report Type: Spontaneous
  Country: US (occurrence: US)
  Receive Date: 20240912
  Receipt Date: 20240912
  Transmission Date: 20241017
  Serious: No
  Sender: Harrow Health
  Company Number: US-IMP-2024000661

PATIENT
  Age: 71 Year
  Sex: Female
  Weight: 83.91 kg

DRUGS (2)
  1. VEVYE [Suspect]
     Active Substance: CYCLOSPORINE
     Indication: Dry eye
     Dosage: ONE DROP TWICE A DAY TO EACH EYE, ONE IN THE MORNING AND ONE AT NIGHT
     Route: 047
     Dates: start: 202403
  2. TIRZEPATIDE [Suspect]
     Active Substance: TIRZEPATIDE
     Indication: Weight decreased
     Route: 065

REACTIONS (3)
  - Weight decreased [Unknown]
  - Product delivery mechanism issue [Unknown]
  - Product use issue [Unknown]

NARRATIVE: CASE EVENT DATE: 20240101
